FAERS Safety Report 6692781-1 (Version None)
Quarter: 2010Q2

REPORT INFORMATION
  Report Type: 
  Country: None (occurrence: None)
  Receive Date: 20100422
  Receipt Date: 20100413
  Transmission Date: 20101027
  Serious: Yes (Hospitalization, Other)
  Sender: FDA-Public Use
  Company Number: US-JNJFOC-20100102493

PATIENT
  Sex: Male
  Weight: 136.08 kg

DRUGS (22)
  1. DURAGESIC-100 [Suspect]
     Indication: PAIN
     Route: 062
  2. DURAGESIC-100 [Suspect]
     Route: 062
  3. LEXAPRO [Concomitant]
     Indication: MOOD SWINGS
     Dosage: UAD (USE AS DIRECTED)
     Route: 048
  4. AMITRIPTYLINE [Concomitant]
     Indication: DEPRESSION
     Route: 048
  5. METOPROLOL TARTRATE [Concomitant]
     Indication: CARDIAC DISORDER
     Dosage: 1 TABLET PO (PERORAL)
     Route: 048
  6. KEPPRA [Concomitant]
     Indication: CARDIAC DISORDER
     Route: 048
  7. METROGEL [Concomitant]
     Dosage: UAD (USE AS DIRECTED) APPLY TO AFFECTED AREA QD (EVERY DAY)
     Route: 065
  8. LOTRISONE [Concomitant]
     Dosage: 1-0.05 %, APPLY BID (TWICE DAILY) TO AFFECTED AREA, DO NOT APPLY TO FACE
     Route: 065
  9. VITAMIN D [Concomitant]
     Dosage: 1 TABLET PERORAL
     Route: 048
  10. RESTORIL [Concomitant]
     Route: 065
  11. PROTONIX [Concomitant]
     Dosage: 40 MG PERORAL QD (EVERY DAY) PRN (AS NEEDED)
     Route: 048
  12. MULTI-VITAMINS [Concomitant]
     Dosage: ONE TABLET PO (PERORAL) OD (ONCE DAILY)
     Route: 048
  13. MIRALAX [Concomitant]
     Dosage: UAD (USE AS DIRECTED)
     Route: 065
  14. LOVASTATIN [Concomitant]
     Dosage: 1 TABLET, PO (PERORAL), OD (ONCE DAILY)
     Route: 048
  15. GABAPENTIN [Concomitant]
     Dosage: ONE PO (PERORAL)
     Route: 048
  16. FLOMAX [Concomitant]
     Dosage: 1 CAPSULE PO (PERORAL) OD (ONCE DAILY)
     Route: 048
  17. ELAVIL [Concomitant]
     Dosage: UAD (USE AS DIRECTED)
     Route: 065
  18. CARDIZEM CD [Concomitant]
     Dosage: ONE TABLET PO (PERORAL) OD (ONCE DAILY)
     Route: 048
  19. CAPOTEN [Concomitant]
     Dosage: ONE TABLET PO (PERORAL)
     Route: 048
  20. CALCIUM [Concomitant]
     Route: 048
  21. AMIODARONE HCL [Concomitant]
     Dosage: 1 PO (PERORAL) BID (TWICE DAILY)
     Route: 048
  22. ALKA-SELTZER [Concomitant]
     Dosage: UAD (USE AS DIRECTED)
     Route: 065

REACTIONS (5)
  - ARTHRALGIA [None]
  - BLOOD COUNT ABNORMAL [None]
  - DRUG INEFFECTIVE [None]
  - HEART RATE INCREASED [None]
  - ULCER HAEMORRHAGE [None]
